FAERS Safety Report 7270655-5 (Version None)
Quarter: 2011Q1

REPORT INFORMATION
  Report Type: 
  Country: None (occurrence: None)
  Receive Date: 20110202
  Receipt Date: 20110124
  Transmission Date: 20110831
  Serious: Yes (Hospitalization, Congenital Anomaly)
  Sender: FDA-Public Use
  Company Number: A0910958A

PATIENT
  Sex: Female

DRUGS (7)
  1. PAXIL CR [Suspect]
     Indication: DEPRESSION
     Route: 064
  2. VITAMIN B-12 [Concomitant]
     Route: 064
  3. PRENATAL VITAMINS [Concomitant]
     Route: 064
  4. ALLEGRA [Concomitant]
     Route: 064
  5. IMITREX [Concomitant]
     Route: 064
  6. ALBUTEROL [Concomitant]
     Route: 064
  7. TYLENOL EXTRA STRENGTH [Concomitant]
     Route: 064

REACTIONS (3)
  - BRONCHOGENIC CYST [None]
  - PULMONARY SEQUESTRATION [None]
  - DRUG EXPOSURE DURING PREGNANCY [None]
